FAERS Safety Report 12460794 (Version 3)
Quarter: 2016Q3

REPORT INFORMATION
  Report Type: Spontaneous
  Country: US (occurrence: US)
  Receive Date: 20160613
  Receipt Date: 20160816
  Transmission Date: 20161109
  Serious: No
  Sender: FDA-Public Use
  Company Number: US-PFIZER INC-2016271170

PATIENT
  Age: 56 Year
  Sex: Female

DRUGS (4)
  1. NEURONTIN [Suspect]
     Active Substance: GABAPENTIN
     Indication: BURNING SENSATION
  2. NEURONTIN [Suspect]
     Active Substance: GABAPENTIN
     Indication: MYOFASCIAL PAIN SYNDROME
     Dosage: 10 MG, 2X/DAY
     Dates: start: 2009
  3. NEURONTIN [Suspect]
     Active Substance: GABAPENTIN
     Indication: FIBROMYALGIA
     Dosage: 20 MG, 1X/DAY
     Dates: start: 2000
  4. NEURONTIN [Suspect]
     Active Substance: GABAPENTIN
     Indication: NERVE INJURY

REACTIONS (5)
  - Burning sensation [Unknown]
  - Product use issue [Unknown]
  - Erythema [Recovered/Resolved]
  - Musculoskeletal stiffness [Unknown]
  - Paraesthesia [Recovered/Resolved]
